FAERS Safety Report 13875218 (Version 1)
Quarter: 2017Q3

REPORT INFORMATION
  Report Type: Spontaneous
  Country: US (occurrence: US)
  Receive Date: 20170816
  Receipt Date: 20170816
  Transmission Date: 20171127
  Serious: Yes (Hospitalization)
  Sender: FDA-Public Use
  Company Number: US-BEH-2017082799

PATIENT
  Age: 37 Year
  Sex: Male
  Weight: 69.84 kg

DRUGS (28)
  1. ZEMAIRA [Suspect]
     Active Substance: .ALPHA.1-PROTEINASE INHIBITOR HUMAN
     Indication: ALPHA-1 ANTI-TRYPSIN DEFICIENCY
     Dosage: UNK
     Route: 042
  2. SERTRALINE [Concomitant]
     Active Substance: SERTRALINE HYDROCHLORIDE
  3. ADVAIR HFA [Concomitant]
     Active Substance: FLUTICASONE PROPIONATE\SALMETEROL XINAFOATE
  4. HYDROCODONE BITARTRATE AND ACETAMINOPHEN [Concomitant]
     Active Substance: ACETAMINOPHEN\HYDROCODONE BITARTRATE
  5. CYCLOBENZAPRINE. [Concomitant]
     Active Substance: CYCLOBENZAPRINE
  6. DIAZEPAM. [Concomitant]
     Active Substance: DIAZEPAM
  7. AMBIEN [Concomitant]
     Active Substance: ZOLPIDEM TARTRATE
  8. SODIUM CHLORIDE. [Concomitant]
     Active Substance: SODIUM CHLORIDE
  9. LMX                                /00033401/ [Concomitant]
  10. NITROGLYCERIN. [Concomitant]
     Active Substance: NITROGLYCERIN
  11. DIPHENHYDRAMINE. [Concomitant]
     Active Substance: DIPHENHYDRAMINE
  12. VALACYCLOVIR [Concomitant]
     Active Substance: VALACYCLOVIR HYDROCHLORIDE
  13. OXYGEN. [Concomitant]
     Active Substance: OXYGEN
  14. LISINOPRIL. [Concomitant]
     Active Substance: LISINOPRIL
  15. ALBUTEROL                          /00139501/ [Concomitant]
     Active Substance: ALBUTEROL
  16. TOPROL XL [Concomitant]
     Active Substance: METOPROLOL SUCCINATE
  17. REPAGLINIDE. [Concomitant]
     Active Substance: REPAGLINIDE
  18. FLUTICASONE. [Concomitant]
     Active Substance: FLUTICASONE
  19. SPIRIVA [Concomitant]
     Active Substance: TIOTROPIUM BROMIDE MONOHYDRATE
  20. JANUMET [Concomitant]
     Active Substance: METFORMIN HYDROCHLORIDE\SITAGLIPTIN PHOSPHATE
  21. ZEMAIRA [Suspect]
     Active Substance: .ALPHA.1-PROTEINASE INHIBITOR HUMAN
     Indication: HEREDITARY ANGIOEDEMA
     Dosage: 60 MG/KG, QW
     Route: 042
     Dates: start: 20140801
  22. METHOCARBAMOL. [Concomitant]
     Active Substance: METHOCARBAMOL
  23. GABAPENTIN. [Concomitant]
     Active Substance: GABAPENTIN
  24. TESTOSTERONE. [Concomitant]
     Active Substance: TESTOSTERONE
  25. CAMBIA [Concomitant]
     Active Substance: DICLOFENAC POTASSIUM
  26. SYMBICORT [Concomitant]
     Active Substance: BUDESONIDE\FORMOTEROL FUMARATE DIHYDRATE
  27. EPINEPHRINE. [Concomitant]
     Active Substance: EPINEPHRINE
  28. MONTELUKAST [Concomitant]
     Active Substance: MONTELUKAST SODIUM

REACTIONS (1)
  - Chest pain [Recovered/Resolved]

NARRATIVE: CASE EVENT DATE: 20170803
